FAERS Safety Report 8496134-5 (Version None)
Quarter: 2012Q3

REPORT INFORMATION
  Report Type: 
  Country: None (occurrence: None)
  Receive Date: 20120709
  Receipt Date: 20120629
  Transmission Date: 20120928
  Serious: Yes (Hospitalization, Other)
  Sender: FDA-Public Use
  Company Number: FR-JNJFOC-20120612950

PATIENT
  Sex: Female

DRUGS (16)
  1. CYCLOPHOSPHAMIDE [Suspect]
     Indication: BREAST NEOPLASM
     Route: 042
     Dates: start: 20110801
  2. CYCLOPHOSPHAMIDE [Suspect]
     Dosage: 14 DAYS ON 21 DAYS
     Route: 042
     Dates: start: 20110201, end: 20110701
  3. DOXORUBICIN HCL [Suspect]
     Indication: PRODUCT USED FOR UNKNOWN INDICATION
     Dosage: 9 COURSES
     Route: 042
     Dates: start: 20090219, end: 20091105
  4. TAXOTERE [Suspect]
     Indication: PRODUCT USED FOR UNKNOWN INDICATION
     Route: 042
     Dates: start: 20050308, end: 20050419
  5. AROMASIN [Concomitant]
     Indication: PRODUCT USED FOR UNKNOWN INDICATION
     Route: 048
     Dates: start: 20061101, end: 20070201
  6. NAVOBAN [Concomitant]
     Indication: METASTASES TO PLEURA
     Route: 048
     Dates: start: 20070701, end: 20071101
  7. DOXORUBICIN HCL [Suspect]
     Dosage: 8 COURSES
     Route: 042
     Dates: start: 20071127, end: 20080624
  8. CYCLOPHOSPHAMIDE [Suspect]
     Route: 042
     Dates: start: 20041203, end: 20050202
  9. FLUOROURACIL [Suspect]
     Indication: PRODUCT USED FOR UNKNOWN INDICATION
     Route: 065
     Dates: start: 20041203, end: 20050202
  10. XELODA [Concomitant]
     Indication: METASTASES TO PLEURA
     Dosage: 4 COURSES
     Route: 048
     Dates: start: 20070701, end: 20071101
  11. EPIRUBICIN [Suspect]
     Indication: PRODUCT USED FOR UNKNOWN INDICATION
     Route: 042
     Dates: start: 20041203, end: 20050202
  12. FASLODEX [Concomitant]
     Indication: PRODUCT USED FOR UNKNOWN INDICATION
     Route: 030
     Dates: start: 20070201, end: 20070501
  13. ESTRACYT [Concomitant]
     Indication: PRODUCT USED FOR UNKNOWN INDICATION
     Route: 048
     Dates: start: 20091203, end: 20110101
  14. FEMARA [Concomitant]
     Indication: PRODUCT USED FOR UNKNOWN INDICATION
     Route: 048
     Dates: start: 20050401, end: 20061101
  15. ARIMIDEX [Concomitant]
     Indication: PRODUCT USED FOR UNKNOWN INDICATION
     Route: 048
     Dates: start: 20080101, end: 20090201
  16. NAVELBINE [Concomitant]
     Indication: METASTASES TO PLEURA
     Dosage: AT DAY 1 AND DAY 8 PER COURSE    4 COURSE
     Route: 042
     Dates: start: 20070701, end: 20071101

REACTIONS (2)
  - DRUG INTOLERANCE [None]
  - TONGUE NEOPLASM MALIGNANT STAGE UNSPECIFIED [None]
